FAERS Safety Report 5447155-8 (Version None)
Quarter: 2007Q3

REPORT INFORMATION
  Report Type: 
  Country: None (occurrence: None)
  Receive Date: 20070910
  Receipt Date: 20070830
  Transmission Date: 20080115
  Serious: Yes (Hospitalization)
  Sender: FDA-Public Use
  Company Number: PHEH2007US11923

PATIENT
  Sex: Female

DRUGS (1)
  1. EXJADE [Suspect]
     Indication: IRON OVERLOAD
     Dosage: 20 MG/KG, QD
     Route: 048

REACTIONS (3)
  - DEHYDRATION [None]
  - NAUSEA [None]
  - VOMITING [None]
